FAERS Safety Report 19711468 (Version 1)
Quarter: 2021Q3

REPORT INFORMATION
  Report Type: Spontaneous
  Country: DE (occurrence: DE)
  Receive Date: 20210817
  Receipt Date: 20210817
  Transmission Date: 20211014
  Serious: Yes (Congenital Anomaly)
  Sender: FDA-Public Use
  Company Number: DE-MYLANLABS-2021M1052044

PATIENT
  Age: 8 Month
  Sex: Male
  Weight: 3.5 kg

DRUGS (13)
  1. MCP [Concomitant]
     Active Substance: METOCLOPRAMIDE HYDROCHLORIDE
     Indication: HYPEREMESIS GRAVIDARUM
     Dosage: 10 [MG/D ]/ AND ORALLY
     Route: 064
     Dates: start: 20180722, end: 20180724
  2. PROGESTERON [Concomitant]
     Active Substance: PROGESTERONE
     Indication: PROPHYLAXIS OF ABORTION
     Dosage: 600 [MG/D (BIS 200 MG/D) ]/ SINCE GESTATIONAL WEEK 11+2: 200 MG/D
     Route: 064
  3. AGYRAX /00072802/ [Suspect]
     Active Substance: MECLIZINE HYDROCHLORIDE
     Indication: MORNING SICKNESS
     Dosage: 50 MG/D (2X25 MG)
     Route: 064
     Dates: start: 20180702
  4. CLEXANE [Concomitant]
     Active Substance: ENOXAPARIN SODIUM
     Indication: PROPHYLAXIS OF ABORTION
     Dosage: 20 MILLIGRAM, QD
     Route: 064
  5. INSULIN BASAL [Concomitant]
     Active Substance: INSULIN NOS
     Indication: GESTATIONAL DIABETES
     Dosage: 3 [I.E./D (ZUR NACHT) ]
     Route: 064
  6. PROLUTEX [Concomitant]
     Active Substance: PROGESTERONE
     Indication: PROPHYLAXIS OF ABORTION
     Dosage: 25 [MG/D ]
     Route: 064
     Dates: start: 20180524, end: 20180709
  7. PREDNISOLONE. [Suspect]
     Active Substance: PREDNISOLONE
     Indication: PROPHYLAXIS OF ABORTION
     Dosage: 5 MILLIGRAM, QD
     Route: 064
  8. MISODEL [Concomitant]
     Indication: LABOUR INDUCTION
     Dosage: UNK
     Route: 064
  9. OVITRELLE [Concomitant]
     Active Substance: CHORIOGONADOTROPIN ALFA
     Indication: INFERTILITY FEMALE
     Dosage: UNK
     Route: 064
  10. ZOFRAN [Concomitant]
     Active Substance: ONDANSETRON HYDROCHLORIDE
     Indication: MORNING SICKNESS
     Dosage: UNK
     Route: 064
  11. L?THYROXIN                         /00068002/ [Concomitant]
     Active Substance: LEVOTHYROXINE SODIUM
     Indication: THYROID DISORDER
     Dosage: 50 MICROGRAM, QD
     Route: 064
     Dates: start: 20180505, end: 20190205
  12. GONAL?F [Concomitant]
     Active Substance: FOLLITROPIN
     Indication: INFERTILITY FEMALE
     Dosage: UNK
     Route: 064
  13. VOMEX A [Concomitant]
     Active Substance: DIMENHYDRINATE
     Indication: MORNING SICKNESS
     Dosage: UNK
     Route: 064
     Dates: start: 20180720, end: 20180721

REACTIONS (3)
  - Kidney duplex [Not Recovered/Not Resolved]
  - Pyelocaliectasis [Not Recovered/Not Resolved]
  - Foetal exposure during pregnancy [Unknown]
